FAERS Safety Report 4692380-7 (Version None)
Quarter: 2005Q2

REPORT INFORMATION
  Report Type: 
  Country: None (occurrence: None)
  Receive Date: 20050615
  Receipt Date: 20050607
  Transmission Date: 20051028
  Serious: Yes (Other)
  Sender: FDA-Public Use
  Company Number: 2005-06-0568

PATIENT
  Age: 67 Year
  Sex: Male

DRUGS (2)
  1. INTRON A [Suspect]
     Indication: CHRONIC MYELOID LEUKAEMIA
     Dosage: 10M MU QD
  2. HYDROXYUREA [Concomitant]

REACTIONS (3)
  - RAYNAUD'S PHENOMENON [None]
  - SKIN NECROSIS [None]
  - SKIN ULCER [None]
